FAERS Safety Report 7846686-0 (Version None)
Quarter: 2011Q4

REPORT INFORMATION
  Report Type: 
  Country: None (occurrence: None)
  Receive Date: 20111025
  Receipt Date: 20111017
  Transmission Date: 20120403
  Serious: Yes (Death, Hospitalization)
  Sender: FDA-Public Use
  Company Number: PHHO2011US14836

PATIENT
  Sex: Female
  Weight: 61.224 kg

DRUGS (14)
  1. CYMBALTA [Concomitant]
     Dosage: 90 MG, QD
     Route: 048
     Dates: start: 20070101
  2. LORAZEPAM [Concomitant]
     Dosage: 5 MG, QD
     Route: 048
     Dates: start: 20110201
  3. OMNICEF [Concomitant]
     Dosage: 300 MG, UNK
     Route: 048
     Dates: start: 20110803, end: 20110817
  4. CYMBALTA [Concomitant]
     Dosage: 60 MG, QD
     Dates: start: 20070101
  5. TRAZODONE HYDROCHLORIDE [Concomitant]
     Dosage: 100 MG, QD
     Route: 048
     Dates: start: 20110201
  6. AFINITOR [Suspect]
     Indication: MENINGIOMA
     Dosage: UNK
     Route: 048
     Dates: start: 20110804, end: 20110822
  7. GABAPENTIN [Concomitant]
     Dosage: 300 MG, QD
     Route: 048
     Dates: start: 20080101
  8. GABAPENTIN [Concomitant]
     Dosage: 300 MG, TID
     Route: 048
     Dates: start: 20080101
  9. FENTANYL-100 [Concomitant]
     Dosage: 25 UG, UNK
     Route: 061
     Dates: start: 20110201
  10. DEXAMETHASONE [Concomitant]
     Dosage: 4 MG, BID,HALF TABLET
     Route: 048
     Dates: start: 20110401
  11. PERCOCET [Concomitant]
     Dosage: 5M/325G
     Route: 048
     Dates: start: 20080101
  12. FOLIC ACID [Concomitant]
     Dosage: 1 MG, QD
     Route: 048
     Dates: start: 20110201
  13. NYSTATIN [Concomitant]
     Dosage: 10 ML, QD 5*QD
     Route: 048
     Dates: start: 20110401
  14. AVASTIN [Suspect]
     Indication: MENINGIOMA
     Dosage: UNK
     Route: 048
     Dates: start: 20110804, end: 20110822

REACTIONS (4)
  - RIB FRACTURE [None]
  - URINARY TRACT INFECTION [None]
  - CONCOMITANT DISEASE PROGRESSION [None]
  - ATAXIA [None]
